FAERS Safety Report 14193516 (Version 1)
Quarter: 2017Q4

REPORT INFORMATION
  Report Type: Spontaneous
  Country: US (occurrence: US)
  Receive Date: 20171115
  Receipt Date: 20171115
  Transmission Date: 20180321
  Serious: No
  Sender: FDA-Public Use
  Company Number: US-BAUSCH-BL-2017-005629

PATIENT
  Sex: Male
  Weight: 18.16 kg

DRUGS (2)
  1. XENAZINE [Suspect]
     Active Substance: TETRABENAZINE
     Indication: CEREBRAL PALSY
     Route: 048
     Dates: start: 201601
  2. XENAZINE [Suspect]
     Active Substance: TETRABENAZINE
     Indication: MUSCLE SPASTICITY

REACTIONS (3)
  - Weight increased [Unknown]
  - Prescribed overdose [Unknown]
  - Off label use [Unknown]
